FAERS Safety Report 8434803-3 (Version None)
Quarter: 2012Q2

REPORT INFORMATION
  Report Type: 
  Country: None (occurrence: None)
  Receive Date: 20120608
  Receipt Date: 20120608
  Transmission Date: 20120825
  Serious: No
  Sender: FDA-Public Use
  Company Number: None

PATIENT

DRUGS (1)
  1. FER-IRON DROPS [Suspect]
     Dosage: DROPS ORAL 50 ML
     Route: 048

REACTIONS (4)
  - PRODUCT BARCODE ISSUE [None]
  - PRODUCT DOSAGE FORM CONFUSION [None]
  - CIRCUMSTANCE OR INFORMATION CAPABLE OF LEADING TO MEDICATION ERROR [None]
  - MEDICATION ERROR [None]
